FAERS Safety Report 15254276 (Version 1)
Quarter: 2018Q4

REPORT INFORMATION
  Report Type: Spontaneous
  Country: US (occurrence: US)
  Receive Date: 20180808
  Receipt Date: 20180808
  Transmission Date: 20190204
  Serious: Yes (Other)
  Sender: FDA-Public Use
  Company Number: US-ELI_LILLY_AND_COMPANY-US201808003009

PATIENT
  Sex: Female

DRUGS (1)
  1. ABEMACICLIB 50MG [Suspect]
     Active Substance: ABEMACICLIB
     Indication: BREAST CANCER
     Dosage: 50 MG, BID
     Route: 065

REACTIONS (1)
  - Glaucoma [Unknown]
